APPROVED DRUG PRODUCT: ENSKYCE
Active Ingredient: DESOGESTREL; ETHINYL ESTRADIOL
Strength: 0.15MG;0.03MG
Dosage Form/Route: TABLET;ORAL-28
Application: A201887 | Product #001 | TE Code: AB
Applicant: LUPIN LTD
Approved: Mar 7, 2013 | RLD: No | RS: No | Type: RX